FAERS Safety Report 22588570 (Version 1)
Quarter: 2023Q2

REPORT INFORMATION
  Report Type: Spontaneous
  Country: US (occurrence: US)
  Receive Date: 20230612
  Receipt Date: 20230612
  Transmission Date: 20230721
  Serious: Yes (Other)
  Sender: FDA-Public Use
  Company Number: US-MYLANLABS-2023M1060845

PATIENT
  Sex: Female
  Weight: 81.64 kg

DRUGS (1)
  1. AMLODIPINE [Suspect]
     Active Substance: AMLODIPINE BESYLATE
     Indication: Product used for unknown indication
     Dosage: UNK
     Route: 065

REACTIONS (6)
  - Pemphigoid [Unknown]
  - Skin weeping [Unknown]
  - Depression [Unknown]
  - Drug hypersensitivity [Unknown]
  - Weight increased [Unknown]
  - Oedema [Unknown]
